FAERS Safety Report 18526089 (Version 6)
Quarter: 2021Q1

REPORT INFORMATION
  Report Type: Report from Study
  Country: CO (occurrence: CO)
  Receive Date: 20201120
  Receipt Date: 20210304
  Transmission Date: 20210419
  Serious: Yes (Hospitalization, Other)
  Sender: FDA-Public Use
  Company Number: CO-AMGEN-COLSL2020141196

PATIENT
  Age: 43 Year
  Sex: Female

DRUGS (2)
  1. VECTIBIX [Suspect]
     Active Substance: PANITUMUMAB
     Indication: COLORECTAL CANCER METASTATIC
     Dosage: 270 MILLIGRAM, Q2WK
     Route: 042
     Dates: start: 20200417, end: 20201123
  2. ARTIFICIAL TEARS [HYPROMELLOSE] [Concomitant]
     Dosage: DROPS BOTTLE # 2 (ONE DROP IN EACH EYE, EVERY 12 HOURS OR REPEAT IN CASE OF FEELING DRY EYES),
     Route: 065
     Dates: start: 20201009

REACTIONS (13)
  - Infection [Not Recovered/Not Resolved]
  - Skin exfoliation [Unknown]
  - Skin laceration [Recovering/Resolving]
  - Skin fissures [Not Recovered/Not Resolved]
  - Pruritus [Unknown]
  - Inflammation [Recovering/Resolving]
  - Weight decreased [Recovering/Resolving]
  - Skin reaction [Unknown]
  - Paronychia [Not Recovered/Not Resolved]
  - Malnutrition [Not Recovered/Not Resolved]
  - Abscess limb [Recovering/Resolving]
  - Asthenia [Not Recovered/Not Resolved]
  - Vomiting [Recovering/Resolving]

NARRATIVE: CASE EVENT DATE: 2020
